FAERS Safety Report 25740338 (Version 2)
Quarter: 2025Q3

REPORT INFORMATION
  Report Type: Spontaneous
  Country: US (occurrence: US)
  Receive Date: 20250829
  Receipt Date: 20250903
  Transmission Date: 20251021
  Serious: No
  Sender: PFIZER
  Company Number: US-PFIZER INC-202500144785

PATIENT
  Age: 80 Year
  Sex: Female

DRUGS (1)
  1. XELJANZ XR [Suspect]
     Active Substance: TOFACITINIB CITRATE

REACTIONS (4)
  - Gait disturbance [Unknown]
  - Movement disorder [Unknown]
  - Blood pressure abnormal [Unknown]
  - Peripheral swelling [Unknown]
